FAERS Safety Report 8936380 (Version 1)
Quarter: 2012Q4

REPORT INFORMATION
  Report Type: 
  Country: FR (occurrence: FR)
  Receive Date: 20121130
  Receipt Date: 20121130
  Transmission Date: 20130627
  Serious: Yes (Hospitalization)
  Sender: FDA-Public Use
  Company Number: FR-009507513-1211FRA009797

PATIENT
  Sex: Male

DRUGS (2)
  1. NORSET [Suspect]
     Indication: PRODUCT USED FOR UNKNOWN INDICATION
     Dosage: 1 DF, qpm
     Route: 048
     Dates: start: 20120612, end: 20120618
  2. TERCIAN [Suspect]
     Indication: PRODUCT USED FOR UNKNOWN INDICATION
     Dosage: 5 Gtt, tid
     Route: 048
     Dates: start: 20120612, end: 20120618

REACTIONS (2)
  - Confusional state [Unknown]
  - Somnolence [Unknown]
